FAERS Safety Report 9803836 (Version 1)
Quarter: 2014Q1

REPORT INFORMATION
  Report Type: Spontaneous
  Country: US (occurrence: US)
  Receive Date: 20140108
  Receipt Date: 20140108
  Transmission Date: 20141002
  Serious: No
  Sender: FDA-Public Use
  Company Number: US-GLAXOSMITHKLINE-A1046312A

PATIENT
  Sex: Female

DRUGS (6)
  1. LOVAZA [Suspect]
     Indication: BLOOD TRIGLYCERIDES INCREASED
     Dosage: 2CAP TWICE PER DAY
     Route: 048
     Dates: start: 20131019
  2. NIACIN [Concomitant]
  3. CALCIUM WITH VITAMIN D [Concomitant]
  4. ESTER C [Concomitant]
  5. VITAMIN E [Concomitant]
  6. RED YEAST RICE [Concomitant]

REACTIONS (1)
  - Off label use [Unknown]
